FAERS Safety Report 11064304 (Version 1)
Quarter: 2015Q2

REPORT INFORMATION
  Report Type: Spontaneous
  Country: NL (occurrence: NL)
  Receive Date: 20150424
  Receipt Date: 20150424
  Transmission Date: 20150821
  Serious: Yes (Hospitalization)
  Sender: FDA-Public Use
  Company Number: NL-009507513-1504NLD016684

PATIENT
  Age: 86 Year
  Sex: Female
  Weight: 61 kg

DRUGS (9)
  1. MOVICOLON [Concomitant]
     Active Substance: POLYETHYLENE GLYCOL 3350\POTASSIUM CHLORIDE\SODIUM BICARBONATE\SODIUM CHLORIDE
     Dosage: ONCE DAILY 1 PIECE(S)
     Route: 048
     Dates: start: 2015
  2. AMOXICILLIN. [Interacting]
     Active Substance: AMOXICILLIN
     Indication: RESPIRATORY TRACT INFECTION
     Dosage: 4 TIMES A DAY 1 PIECE(S), ADDITIONAL INFORMATION: 500 MG
     Route: 048
     Dates: start: 20150321, end: 20150331
  3. AMLODIPINE [Interacting]
     Active Substance: AMLODIPINE BESYLATE
     Indication: HYPERTENSION
     Dosage: ONCE DAILY 1 PIECE(S)
     Route: 048
     Dates: start: 20150321, end: 20150331
  4. CALCIUM CARBONATE (+) CHOLECALCIFEROL [Concomitant]
     Active Substance: CALCIUM CARBONATE\CHOLECALCIFEROL
     Dosage: ONCE DAILY 1 PIECE(S), 1,25G/800IE (500MG CA)
     Route: 030
     Dates: start: 2015
  5. ACETAMINOPHEN. [Concomitant]
     Active Substance: ACETAMINOPHEN
     Dosage: 3 TIMES A DAY 1 PIECE(S)
     Route: 048
     Dates: start: 2015
  6. DILTIAZEM HYDROCHLORIDE. [Concomitant]
     Active Substance: DILTIAZEM HYDROCHLORIDE
     Dosage: ONCE DAILY 1 PIECE(S)
     Route: 048
     Dates: start: 2015
  7. ATORVASTATIN [Concomitant]
     Active Substance: ATORVASTATIN
     Dosage: ONCE DAILY 1 PIECE(S)
     Route: 048
     Dates: start: 2015
  8. MORPHINE SULFATE. [Concomitant]
     Active Substance: MORPHINE SULFATE
     Dosage: 2 TIMES A DAY 1 PIECE(S)
     Route: 048
     Dates: start: 2015
  9. LOSARTAN POTASSIUM. [Suspect]
     Active Substance: LOSARTAN POTASSIUM
     Indication: HYPERTENSION
     Dosage: ONCE DAILY 1 PIECE(S)
     Route: 048
     Dates: start: 20150306, end: 20150331

REACTIONS (2)
  - Hepatotoxicity [Recovering/Resolving]
  - Drug interaction [Recovering/Resolving]

NARRATIVE: CASE EVENT DATE: 20150322
